FAERS Safety Report 5955198-0 (Version None)
Quarter: 2008Q4

REPORT INFORMATION
  Report Type: 
  Country: None (occurrence: None)
  Receive Date: 20081112
  Receipt Date: 20081020
  Transmission Date: 20090506
  Serious: Yes (Other)
  Sender: FDA-Public Use
  Company Number: 2008S1013322

PATIENT
  Sex: Female

DRUGS (2)
  1. LOVAN (FLUOXETINE HYDROCHLORIDE) (20 MG) [Suspect]
     Indication: DEPRESSION
     Dosage: 20 MG; DAILY;
     Dates: start: 19960901, end: 20080701
  2. ZYPREXA [Suspect]
     Indication: BIPOLAR DISORDER
     Dosage: 5 MG; DAILY; ORAL
     Route: 048
     Dates: start: 20041101

REACTIONS (2)
  - ABORTION SPONTANEOUS [None]
  - DRUG EXPOSURE DURING PREGNANCY [None]
